FAERS Safety Report 5644245-1 (Version None)
Quarter: 2008Q1

REPORT INFORMATION
  Report Type: 
  Country: None (occurrence: None)
  Receive Date: 20080227
  Receipt Date: 20080227
  Transmission Date: 20080703
  Serious: Yes (Other)
  Sender: FDA-Public Use
  Company Number: None

PATIENT
  Age: 5 Year
  Sex: Male
  Weight: 17.2367 kg

DRUGS (1)
  1. TAMIFLU [Suspect]
     Indication: INFLUENZA SEROLOGY POSITIVE
     Dosage: 3/4 TEASPOON 2/DAY PO
     Route: 048
     Dates: start: 20080224, end: 20080224

REACTIONS (3)
  - HALLUCINATION [None]
  - PYREXIA [None]
  - SLEEP TERROR [None]
